FAERS Safety Report 8313379-5 (Version None)
Quarter: 2012Q2

REPORT INFORMATION
  Report Type: 
  Country: None (occurrence: None)
  Receive Date: 20120426
  Receipt Date: 20120423
  Transmission Date: 20120825
  Serious: Yes (Death, Hospitalization)
  Sender: FDA-Public Use
  Company Number: PHEH2012US000926

PATIENT
  Sex: Male
  Weight: 56.236 kg

DRUGS (1)
  1. ZOMETA [Suspect]
     Indication: METASTASES TO BONE
     Dosage: 3 MG, EVERY 3 WEEKS
     Route: 042
     Dates: start: 20110404, end: 20120206

REACTIONS (3)
  - PAIN [None]
  - DEATH [None]
  - LUNG CANCER METASTATIC [None]
